FAERS Safety Report 9693411 (Version 1)
Quarter: 2013Q4

REPORT INFORMATION
  Report Type: Spontaneous
  Country: US (occurrence: US)
  Receive Date: 20131118
  Receipt Date: 20131118
  Transmission Date: 20140711
  Serious: No
  Sender: FDA-Public Use
  Company Number: US-TEVA-445153USA

PATIENT
  Age: 20 Year
  Sex: Female
  Weight: 90.8 kg

DRUGS (3)
  1. PLAN B ONE-STEP [Suspect]
     Indication: POST COITAL CONTRACEPTION
     Dosage: 1.5 MILLIGRAM DAILY;
     Route: 048
     Dates: start: 20131027, end: 20131027
  2. MONONESSA [Concomitant]
     Indication: CONTRACEPTION
  3. ANTIBIOTICS [Concomitant]
     Indication: INFECTION

REACTIONS (1)
  - Menstruation irregular [Not Recovered/Not Resolved]
